FAERS Safety Report 8493539-3 (Version None)
Quarter: 2012Q3

REPORT INFORMATION
  Report Type: 
  Country: None (occurrence: None)
  Receive Date: 20120706
  Receipt Date: 20120704
  Transmission Date: 20120928
  Serious: Yes (Death, Hospitalization)
  Sender: FDA-Public Use
  Company Number: CA-B.I. PHARMACEUTICALS,INC./RIDGEFIELD-2012-CN-00293CN

PATIENT
  Age: 78 Year
  Sex: Female

DRUGS (13)
  1. BISACODYL [Concomitant]
     Dosage: 5 MG
     Route: 048
  2. DETROL LA [Concomitant]
     Dosage: 2 MG
     Route: 048
  3. DIGOXIN [Concomitant]
     Dosage: 0.125 MG
     Route: 048
  4. GALANTAMINE HYDROBROMIDE [Concomitant]
     Dosage: 24 MG
     Route: 048
  5. VITAMIN D [Concomitant]
     Dosage: 1000 U
     Route: 048
  6. ASPIRIN [Concomitant]
     Dosage: 81 MG
     Route: 048
  7. TRAZODONE HCL [Concomitant]
     Dosage: 50 MG
     Route: 048
  8. FEMARA [Concomitant]
     Dosage: 2.5 MG
     Route: 048
  9. PRADAXA [Suspect]
     Indication: ATRIAL FIBRILLATION
     Dosage: 300 MG
     Route: 048
     Dates: start: 20110101, end: 20110101
  10. ACTONEL [Concomitant]
     Dosage: 35 MG WEEKLY
     Route: 048
     Dates: start: 20071207
  11. CHOLECALCIFEROL [Concomitant]
     Route: 048
  12. CALCIUM CARBONATE [Concomitant]
     Dosage: 1000 MG
     Route: 048
  13. CRESTOR [Concomitant]
     Dosage: 20 MG
     Route: 048

REACTIONS (14)
  - GASTROINTESTINAL HAEMORRHAGE [None]
  - HAEMOGLOBIN DECREASED [None]
  - HYPOPHAGIA [None]
  - INTERNATIONAL NORMALISED RATIO INCREASED [None]
  - HYPOTENSION [None]
  - ANAEMIA [None]
  - FALL [None]
  - SYNCOPE [None]
  - ACTIVATED PARTIAL THROMBOPLASTIN TIME PROLONGED [None]
  - CEREBRAL HAEMORRHAGE [None]
  - DEPRESSED LEVEL OF CONSCIOUSNESS [None]
  - MALAISE [None]
  - PALLOR [None]
  - LETHARGY [None]
